FAERS Safety Report 10479819 (Version 1)
Quarter: 2014Q3

REPORT INFORMATION
  Report Type: Spontaneous
  Country: US (occurrence: US)
  Receive Date: 20140928
  Receipt Date: 20140928
  Transmission Date: 20150326
  Serious: Yes (Death)
  Sender: FDA-Public Use
  Company Number: US-BRISTOL-MYERS SQUIBB COMPANY-21434501

PATIENT
  Age: 91 Year
  Sex: Female

DRUGS (1)
  1. COUMADIN [Suspect]
     Active Substance: WARFARIN SODIUM
     Indication: PULMONARY THROMBOSIS

REACTIONS (2)
  - Haemorrhage [Fatal]
  - Confusional state [Fatal]
